FAERS Safety Report 6144767-3 (Version None)
Quarter: 2009Q2

REPORT INFORMATION
  Report Type: 
  Country: None (occurrence: None)
  Receive Date: 20090401
  Receipt Date: 20090401
  Transmission Date: 20091009
  Serious: No
  Sender: FDA-Public Use
  Company Number: None

PATIENT
  Age: 28 Year
  Sex: Female
  Weight: 52.1637 kg

DRUGS (2)
  1. CREST PRO HEALTH MOUTHWASH CREST [Suspect]
     Indication: BREATH ODOUR
     Dosage: 20ML -RINSE ONLY- 2 TIMES A DAY PO
     Route: 048
     Dates: start: 20090301, end: 20090320
  2. CREST PRO HEALTH MOUTHWASH CREST [Suspect]
     Indication: GINGIVITIS
     Dosage: 20ML -RINSE ONLY- 2 TIMES A DAY PO
     Route: 048
     Dates: start: 20090301, end: 20090320

REACTIONS (5)
  - DYSGEUSIA [None]
  - GLOSSITIS [None]
  - GLOSSODYNIA [None]
  - OROPHARYNGEAL PAIN [None]
  - SWOLLEN TONGUE [None]
